FAERS Safety Report 11287481 (Version 4)
Quarter: 2024Q3

REPORT INFORMATION
  Report Type: Spontaneous
  Country: JP (occurrence: JP)
  Receive Date: 20150721
  Receipt Date: 20240918
  Transmission Date: 20241016
  Serious: Yes (Death, Life-Threatening, Hospitalization, Other)
  Sender: SANOFI AVENTIS
  Company Number: JP-SA-2015SA105283

PATIENT
  Age: 55 Year
  Sex: Male

DRUGS (5)
  1. DOCETAXEL [Suspect]
     Active Substance: DOCETAXEL\DOCETAXEL ANHYDROUS
     Indication: Nasopharyngeal cancer
     Dosage: 10 MG/M2, QW
     Route: 065
  2. DOCETAXEL [Suspect]
     Active Substance: DOCETAXEL\DOCETAXEL ANHYDROUS
     Dosage: 60 MG/M2, QD
     Route: 065
  3. CISPLATIN [Suspect]
     Active Substance: CISPLATIN
     Indication: Nasopharyngeal cancer
     Dosage: 20 MG/M2,QW
     Route: 065
  4. CISPLATIN [Suspect]
     Active Substance: CISPLATIN
     Dosage: 60 MG/M2, QD
     Route: 065
  5. FLUOROURACIL [Suspect]
     Active Substance: FLUOROURACIL
     Indication: Nasopharyngeal cancer
     Dosage: 600 MG/M2
     Route: 065

REACTIONS (17)
  - Febrile neutropenia [Fatal]
  - Pyrexia [Fatal]
  - Neutropenia [Fatal]
  - Stomatitis [Fatal]
  - Pneumonia staphylococcal [Fatal]
  - Diffuse alveolar damage [Fatal]
  - Acute respiratory distress syndrome [Fatal]
  - Cytomegalovirus infection [Fatal]
  - Enterocolitis [Fatal]
  - Diarrhoea [Fatal]
  - Gastrointestinal oedema [Fatal]
  - Septic shock [Fatal]
  - Enteritis [Fatal]
  - Sepsis [Unknown]
  - Candida infection [Unknown]
  - Renal impairment [Unknown]
  - Generalised oedema [Unknown]
